FAERS Safety Report 8783497 (Version 2)
Quarter: 2012Q4

REPORT INFORMATION
  Report Type: Report from Study
  Country: US (occurrence: US)
  Receive Date: 20120913
  Receipt Date: 20120918
  Transmission Date: 20130627
  Serious: Yes (Hospitalization)
  Sender: FDA-Public Use
  Company Number: US-VERTEX PHARMACEUTICAL INC.-2012-020953

PATIENT
  Age: 44 Year
  Sex: Female
  Weight: 61.5 kg

DRUGS (10)
  1. VX-950 [Suspect]
     Indication: HEPATITIS C
     Dosage: 750 mg, tid
     Route: 048
     Dates: start: 20110414, end: 20110622
  2. RIBAVIRIN [Suspect]
     Indication: HEPATITIS C
     Dosage: 1000 mg, bid
     Route: 048
     Dates: start: 20110414, end: 20110501
  3. RIBAVIRIN [Suspect]
     Dosage: 1000 mg, qd
     Route: 048
     Dates: start: 20110502, end: 20110609
  4. PEGINTERFERON ALFA-2A [Suspect]
     Indication: HEPATITIS C
     Dosage: 180 ?g, weekly
     Route: 058
     Dates: start: 20110414, end: 20110601
  5. PEGINTERFERON ALFA-2A [Suspect]
     Dosage: 90 ?g, weekly
     Route: 058
     Dates: start: 20110602, end: 20110615
  6. LORTAB [Concomitant]
     Indication: MUSCULOSKELETAL PAIN
     Dosage: 5 mg, prn
  7. PHENERGAN [Concomitant]
     Dosage: 25 mg, prn
     Route: 048
     Dates: start: 20110415
  8. GABAPENTIN [Concomitant]
     Indication: PAIN
     Dosage: 600 mg, prn
     Route: 048
  9. PREVACID [Concomitant]
     Dosage: 30 mg, qd
     Route: 048
  10. NADOLOL [Concomitant]
     Dosage: 40 mg, qd
     Route: 048

REACTIONS (2)
  - Pancytopenia [Recovered/Resolved]
  - Vaginal haemorrhage [Recovered/Resolved]
